FAERS Safety Report 9505001 (Version 1)
Quarter: 2013Q3

REPORT INFORMATION
  Report Type: Report from Study
  Country: US (occurrence: US)
  Receive Date: 20130906
  Receipt Date: 20130906
  Transmission Date: 20140515
  Serious: Yes (Hospitalization, Other)
  Sender: FDA-Public Use
  Company Number: US-ABBOTT-13P-163-1141398-00

PATIENT
  Age: 65 Year
  Sex: Male

DRUGS (1)
  1. HUMIRA [Suspect]
     Indication: RHEUMATOID ARTHRITIS
     Dates: end: 201302

REACTIONS (6)
  - Head injury [Recovered/Resolved]
  - Subdural haematoma [Unknown]
  - Cerebral haemorrhage [Unknown]
  - Fall [Recovered/Resolved]
  - Post-traumatic epilepsy [Recovered/Resolved]
  - Brain oedema [Recovered/Resolved]
